FAERS Safety Report 4949214-2 (Version None)
Quarter: 2006Q1

REPORT INFORMATION
  Report Type: 
  Country: None (occurrence: None)
  Receive Date: 20060321
  Receipt Date: 20050919
  Transmission Date: 20060701
  Serious: Yes (Hospitalization)
  Sender: FDA-Public Use
  Company Number: US-MERCK-0509USA02607

PATIENT
  Age: 72 Year
  Sex: Female
  Weight: 121 kg

DRUGS (18)
  1. VIOXX [Suspect]
     Indication: ARTHRITIS
     Route: 048
     Dates: start: 20021010, end: 20030301
  2. SEREVENT [Concomitant]
     Route: 055
  3. FUROSEMIDE [Concomitant]
     Route: 048
  4. ALTACE [Concomitant]
     Route: 048
  5. AMBIEN [Concomitant]
     Route: 048
  6. PLAVIX [Concomitant]
     Route: 048
  7. LEXAPRO [Concomitant]
     Route: 048
  8. POTASSIUM (UNSPECIFIED) [Concomitant]
     Route: 048
  9. SPECTAZOLE [Concomitant]
     Route: 061
  10. NYSTATIN USP (PADDOCK) [Concomitant]
     Route: 048
  11. TRIAMCINOLONE [Concomitant]
     Route: 048
  12. ACETAMINOPHEN AND PROPOXYPHENE NAPSYLATE [Concomitant]
     Route: 065
  13. ASPIRIN [Concomitant]
     Route: 048
  14. THIAMINE [Concomitant]
     Route: 048
  15. FOLIC ACID [Concomitant]
     Route: 048
  16. ALBUTEROL [Concomitant]
     Route: 055
  17. ZOLOFT [Concomitant]
     Route: 048
  18. NITROGLYCERIN [Concomitant]
     Route: 048

REACTIONS (39)
  - ACUTE PULMONARY OEDEMA [None]
  - ANAEMIA [None]
  - AORTIC VALVE STENOSIS [None]
  - ARTERIOSCLEROSIS [None]
  - CARDIAC FAILURE CONGESTIVE [None]
  - CARDIAC VALVE DISEASE [None]
  - CEREBROVASCULAR ACCIDENT [None]
  - CHEST PAIN [None]
  - CHOLELITHIASIS [None]
  - COAGULOPATHY [None]
  - DEMENTIA ALZHEIMER'S TYPE [None]
  - DEPRESSION [None]
  - EJECTION FRACTION DECREASED [None]
  - GASTROOESOPHAGEAL REFLUX DISEASE [None]
  - HAEMATOCRIT DECREASED [None]
  - HAEMOGLOBIN DECREASED [None]
  - HYPERTENSION [None]
  - HYPOTENSION [None]
  - INSOMNIA [None]
  - INTERVERTEBRAL DISC DEGENERATION [None]
  - IRRITABLE BOWEL SYNDROME [None]
  - ISCHAEMIC CARDIOMYOPATHY [None]
  - LOW DENSITY LIPOPROTEIN INCREASED [None]
  - MITRAL VALVE INCOMPETENCE [None]
  - NORMOCHROMIC NORMOCYTIC ANAEMIA [None]
  - ONYCHOMYCOSIS [None]
  - OVERWEIGHT [None]
  - PLATELET COUNT DECREASED [None]
  - POSTNASAL DRIP [None]
  - RENAL FAILURE [None]
  - ROAD TRAFFIC ACCIDENT [None]
  - SPLENOMEGALY [None]
  - TINEA CRURIS [None]
  - TINEA PEDIS [None]
  - TINEA VERSICOLOUR [None]
  - TRANSIENT ISCHAEMIC ATTACK [None]
  - URINARY TRACT INFECTION [None]
  - VASCULAR DEMENTIA [None]
  - WHITE BLOOD CELL COUNT DECREASED [None]
